FAERS Safety Report 15245327 (Version 3)
Quarter: 2018Q3

REPORT INFORMATION
  Report Type: Spontaneous
  Country: US (occurrence: US)
  Receive Date: 20180806
  Receipt Date: 20180910
  Transmission Date: 20181010
  Serious: Yes (Death, Hospitalization, Other)
  Sender: FDA-Public Use
  Company Number: US-PFIZER INC-2018309852

PATIENT
  Age: 87 Year
  Sex: Female

DRUGS (1)
  1. XALKORI [Suspect]
     Active Substance: CRIZOTINIB
     Indication: LUNG CARCINOMA CELL TYPE UNSPECIFIED STAGE I
     Dosage: 250 MG, 2X/DAY
     Route: 048
     Dates: start: 201802, end: 201807

REACTIONS (6)
  - Dyspnoea [Unknown]
  - Adrenomegaly [Unknown]
  - Neoplasm progression [Fatal]
  - Fall [Unknown]
  - Body height decreased [Unknown]
  - Hip fracture [Unknown]

NARRATIVE: CASE EVENT DATE: 20180726
